FAERS Safety Report 12430039 (Version 1)
Quarter: 2016Q2

REPORT INFORMATION
  Report Type: Spontaneous
  Country: JP (occurrence: JP)
  Receive Date: 20160602
  Receipt Date: 20160602
  Transmission Date: 20160815
  Serious: Yes (Life-Threatening)
  Sender: FDA-Public Use
  Company Number: JP-MALLINCKRODT-T201602075

PATIENT

DRUGS (2)
  1. CALONAL [Suspect]
     Active Substance: ACETAMINOPHEN
     Dosage: 2100 MG (700 MG 3X/DAY)
     Route: 065
  2. OFIRMEV [Suspect]
     Active Substance: ACETAMINOPHEN
     Indication: ANTIPYRESIS
     Dosage: 1000 MG TO 2000 MG PER DAY AS NEEDED
     Route: 042

REACTIONS (3)
  - Hepatic function abnormal [Recovering/Resolving]
  - Stevens-Johnson syndrome [Recovering/Resolving]
  - Multiple organ dysfunction syndrome [Recovering/Resolving]
